FAERS Safety Report 5022916-8 (Version None)
Quarter: 2006Q2

REPORT INFORMATION
  Report Type: 
  Country: None (occurrence: None)
  Receive Date: 20060426
  Receipt Date: 20060310
  Transmission Date: 20061013
  Serious: Yes (Other)
  Sender: FDA-Public Use
  Company Number: 2006035621

PATIENT
  Age: 45 Year
  Sex: Female
  Weight: 80.7403 kg

DRUGS (6)
  1. LYRICA [Suspect]
     Indication: FIBROMYALGIA
     Dosage: 225 MG (75 MG,3 IN 1 D),ORAL
     Route: 048
     Dates: start: 20060301, end: 20060310
  2. NORFLEX [Concomitant]
  3. PHRENILIN FORTE (BUTALBITAL, PARACETAMOL) [Concomitant]
  4. AMBIEN [Concomitant]
  5. VICODIN [Concomitant]
  6. NEURONTIN [Concomitant]

REACTIONS (2)
  - BLOOD GLUCOSE DECREASED [None]
  - SOMNOLENCE [None]
